FAERS Safety Report 7602758-7 (Version None)
Quarter: 2011Q3

REPORT INFORMATION
  Report Type: 
  Country: None (occurrence: None)
  Receive Date: 20110712
  Receipt Date: 20110705
  Transmission Date: 20111222
  Serious: Yes (Hospitalization, Other)
  Sender: FDA-Public Use
  Company Number: US-ASTRAZENECA-2011SE40073

PATIENT
  Sex: Female

DRUGS (5)
  1. NEXIUM [Suspect]
     Indication: GASTROOESOPHAGEAL REFLUX DISEASE
     Dosage: DOSE FREQUENCY-BID, TOTAL DAILY DOSE-20 MG
     Route: 048
     Dates: start: 20050101
  2. LIPITOR [Concomitant]
  3. MIRAPEX [Concomitant]
  4. ALLERGY MEDICINE [Concomitant]
  5. WELLBUTRIN [Concomitant]

REACTIONS (3)
  - SHOULDER OPERATION [None]
  - SHOULDER ARTHROPLASTY [None]
  - RHEUMATOID ARTHRITIS [None]
